FAERS Safety Report 19275078 (Version 1)
Quarter: 2021Q2

REPORT INFORMATION
  Report Type: Spontaneous
  Country: US (occurrence: US)
  Receive Date: 20210519
  Receipt Date: 20210519
  Transmission Date: 20210717
  Serious: Yes (Other)
  Sender: FDA-Public Use
  Company Number: US-LUPIN PHARMACEUTICALS INC.-2021-07233

PATIENT
  Age: 14 Year
  Sex: Female
  Weight: 78 kg

DRUGS (11)
  1. ANAKINRA [Suspect]
     Active Substance: ANAKINRA
     Indication: COVID-19
     Dosage: UNK
     Route: 065
     Dates: start: 2020
  2. REMDESIVIR. [Suspect]
     Active Substance: REMDESIVIR
     Indication: COVID-19
     Dosage: UNK
     Route: 065
     Dates: start: 2020
  3. MEROPENEM. [Suspect]
     Active Substance: MEROPENEM
     Indication: COVID-19
     Dosage: UNK
     Route: 065
     Dates: start: 2020
  4. ENOXAPARIN [Suspect]
     Active Substance: ENOXAPARIN
     Indication: COVID-19
  5. VASOPRESSIN. [Suspect]
     Active Substance: VASOPRESSIN
     Indication: COVID-19
     Dosage: UNK
     Route: 065
     Dates: start: 2020
  6. TOCILIZUMAB. [Suspect]
     Active Substance: TOCILIZUMAB
     Indication: COVID-19
     Dosage: UNK
     Route: 065
     Dates: start: 2020
  7. AMIODARONE [Suspect]
     Active Substance: AMIODARONE
     Indication: COVID-19
     Dosage: UNK
     Route: 065
     Dates: start: 2020
  8. LIDOCAINE. [Suspect]
     Active Substance: LIDOCAINE
     Indication: COVID-19
     Dosage: UNK
     Route: 065
     Dates: start: 2020
  9. VANCOMYCIN [Suspect]
     Active Substance: VANCOMYCIN
     Indication: COVID-19
     Dosage: UNK
     Route: 065
     Dates: start: 2020
  10. ENOXAPARIN [Suspect]
     Active Substance: ENOXAPARIN
     Indication: ANTICOAGULANT THERAPY
     Dosage: UNK
     Route: 065
     Dates: start: 2020
  11. NOREPINEPHRINE. [Suspect]
     Active Substance: NOREPINEPHRINE
     Indication: COVID-19
     Dosage: UNK
     Route: 065
     Dates: start: 2020

REACTIONS (1)
  - Off label use [Unknown]

NARRATIVE: CASE EVENT DATE: 2020
